FAERS Safety Report 18482543 (Version 1)
Quarter: 2020Q4

REPORT INFORMATION
  Report Type: Spontaneous
  Country: US (occurrence: US)
  Receive Date: 20201109
  Receipt Date: 20201109
  Transmission Date: 20210114
  Serious: No
  Sender: FDA-Public Use
  Company Number: US-ALLERGAN-2014720US

PATIENT
  Sex: Female

DRUGS (1)
  1. LO LOESTRIN FE [Suspect]
     Active Substance: ETHINYL ESTRADIOL\NORETHINDRONE ACETATE
     Indication: CONTRACEPTION
     Dosage: UNK
     Dates: start: 201911, end: 202001

REACTIONS (4)
  - Feeling abnormal [Recovering/Resolving]
  - Alopecia [Recovering/Resolving]
  - Metrorrhagia [Recovering/Resolving]
  - Anxiety [Recovering/Resolving]
